FAERS Safety Report 12694011 (Version 4)
Quarter: 2019Q2

REPORT INFORMATION
  Report Type: Spontaneous
  Country: US (occurrence: US)
  Receive Date: 20160829
  Receipt Date: 20190612
  Transmission Date: 20190711
  Serious: Yes (Other)
  Sender: FDA-Public Use
  Company Number: US-PFIZER INC-2016400774

PATIENT
  Age: 56 Year
  Sex: Female

DRUGS (27)
  1. LYRICA [Suspect]
     Active Substance: PREGABALIN
     Indication: NEUROPATHY PERIPHERAL
     Dosage: 150 MG, 2X/DAY
     Route: 048
  2. LYRICA [Suspect]
     Active Substance: PREGABALIN
     Dosage: 100 MG, 4X/DAY
  3. AMITIZA [Concomitant]
     Active Substance: LUBIPROSTONE
     Dosage: 48 UG, 2X/DAY (WITH FOOD AND WATER)
     Route: 048
  4. MIRTAZAPINE. [Concomitant]
     Active Substance: MIRTAZAPINE
     Dosage: 15 MG, 1X/DAY (BEFORE BEDTIME)
     Route: 048
  5. LO LOESTRIN FE [Concomitant]
     Active Substance: ETHINYL ESTRADIOL\NORETHINDRONE ACETATE
     Dosage: 1 DF, DAILY (1/10 TABS 28^S 1/10)
  6. NORCO [Concomitant]
     Active Substance: ACETAMINOPHEN\HYDROCODONE BITARTRATE
     Indication: PAIN
     Dosage: UNK, AS NEEDED [ HYDROCODONE BITARTRATE: 10MG] [PARACETAMOL: 325 MG] (EVERY 4 HOURS AS NEEDED )
     Route: 048
  7. VICODIN [Concomitant]
     Active Substance: ACETAMINOPHEN\HYDROCODONE BITARTRATE
     Dosage: 10 MG, UNK
  8. EDLUAR [Concomitant]
     Active Substance: ZOLPIDEM TARTRATE
     Dosage: 20 MG, DAILY (AT BEDTIME)
     Route: 060
  9. SUCRALFATE. [Concomitant]
     Active Substance: SUCRALFATE
     Dosage: 1 G, 4X/DAY (TAKE 1 TABLET BY ORAL ROUTE 4 TIMES EVERY DAY ON AN EMPTY STOMACH 1 HOUR BEFORE MEALS )
     Route: 048
  10. BACLOFEN. [Concomitant]
     Active Substance: BACLOFEN
     Dosage: 10 MG, DAILY
     Route: 048
  11. LYRICA [Suspect]
     Active Substance: PREGABALIN
     Indication: PAIN
     Dosage: 75 MG, 3X/DAY
     Route: 048
  12. LYRICA [Suspect]
     Active Substance: PREGABALIN
     Indication: NEURALGIA
     Dosage: 1 DF, 4X/DAY, (TAKE ONE CAPSULE FOUR TIMES DAILY)
  13. SONATA [Concomitant]
     Active Substance: ZALEPLON
     Dosage: 15 MG, UNK
  14. HYDROCHLOROTHIAZIDE. [Concomitant]
     Active Substance: HYDROCHLOROTHIAZIDE
     Dosage: 12.5 MG, 1X/DAY
     Route: 048
  15. TOPICAINE [Concomitant]
     Active Substance: LIDOCAINE
     Indication: PAIN
     Dosage: 5 %, AS NEEDED (APPLY TO AFFECTED AREA TID PRN)
     Route: 061
  16. MIRTAZAPINE. [Concomitant]
     Active Substance: MIRTAZAPINE
     Dosage: 15 MG, AS NEEDED (TAKE 1-2 TABLETS AT BEDTIME AS NEEDED)
     Route: 048
  17. XIFAXAN [Concomitant]
     Active Substance: RIFAXIMIN
     Dosage: 550 MG, 2X/DAY
     Route: 048
  18. LYRICA [Suspect]
     Active Substance: PREGABALIN
     Indication: TRIGEMINAL NEURALGIA
     Dosage: 75 MG, 2X/DAY
     Route: 048
  19. EDLUAR [Concomitant]
     Active Substance: ZOLPIDEM TARTRATE
     Dosage: 10 MG, UNK
     Route: 060
  20. NORTRIPTYLINE [Concomitant]
     Active Substance: NORTRIPTYLINE
     Dosage: 20 MG, DAILY
     Route: 048
  21. LINZESS [Concomitant]
     Active Substance: LINACLOTIDE
     Dosage: 145 UG, 2X/DAY (2 TIMES EVERY DAY ON AN EMPTY STOMACH AT LEAST 30 MINUTES BEFORE 1ST MEAL OF THE DA)
     Route: 048
  22. KLOR-CON [Concomitant]
     Active Substance: POTASSIUM CHLORIDE
     Dosage: 8 MEQ, 1X/DAY (WITH FOOD)
     Route: 048
  23. ACTIVELLA [Concomitant]
     Active Substance: ESTRADIOL\NORETHINDRONE ACETATE
     Dosage: 1 DF, DAILY, (0.5-0.1 MG)
     Route: 048
  24. METOPROLOL. [Concomitant]
     Active Substance: METOPROLOL
     Dosage: 25 MG, 2X/DAY
     Route: 048
  25. REMERON [Concomitant]
     Active Substance: MIRTAZAPINE
     Dosage: 15 MG, UNK
  26. FLUCONAZOLE. [Concomitant]
     Active Substance: FLUCONAZOLE
     Dosage: 150 MG, DAILY
     Route: 048
  27. VALIUM [Concomitant]
     Active Substance: DIAZEPAM
     Dosage: 10 MG, AS NEEDED (TAKE 1 TABLET BY ORAL ROUTE 3 TIMES EVERY DAY AS NEEDED)
     Route: 048

REACTIONS (3)
  - Off label use [Unknown]
  - Product use issue [Unknown]
  - Drug dependence [Unknown]
